FAERS Safety Report 9255917 (Version 1)
Quarter: 2013Q2

REPORT INFORMATION
  Report Type: Spontaneous
  Country: GB (occurrence: GB)
  Receive Date: 20130425
  Receipt Date: 20130425
  Transmission Date: 20140414
  Serious: Yes (Life-Threatening, Hospitalization)
  Sender: FDA-Public Use
  Company Number: GB-BAYER-2013-051130

PATIENT
  Age: 90 Year
  Sex: Female

DRUGS (13)
  1. XARELTO [Suspect]
     Indication: THROMBOSIS PROPHYLAXIS
     Dosage: 10 MG, QD
     Route: 048
     Dates: start: 201303, end: 201304
  2. XARELTO [Suspect]
     Indication: HIP ARTHROPLASTY
  3. ACETYLSALICYLIC ACID({=100 MG) [Suspect]
     Dosage: 75 MG, QD
     Route: 048
  4. CILOSTAZOL [Suspect]
     Dosage: 100 MG, BID
     Route: 048
  5. ATORVASTATIN [Concomitant]
     Dosage: 10 MG, QD
     Route: 048
  6. CODEINE [Concomitant]
     Dosage: 30 MG, QID
     Route: 048
  7. FUROSEMIDE [Concomitant]
     Dosage: 40 MG, QD
     Route: 048
  8. LACIDIPINE [Concomitant]
     Dosage: 2 MG, QD
     Route: 048
  9. LACTULOSE [Concomitant]
     Indication: CONSTIPATION
     Dosage: 15 MG, BID
     Route: 048
  10. NICORANDIL [Concomitant]
     Dosage: 20 MG, BID
     Route: 048
  11. PARACETAMOL [Concomitant]
     Dosage: 1 G, TID
  12. RAMIPRIL [Concomitant]
     Dosage: 1.25 MG, QD
     Route: 048
  13. SENNA [Concomitant]
     Indication: CONSTIPATION
     Dosage: 15 MG, QD
     Route: 048

REACTIONS (4)
  - Faeces discoloured [Recovered/Resolved with Sequelae]
  - Gastrointestinal haemorrhage [Unknown]
  - Haemoglobin decreased [Recovered/Resolved with Sequelae]
  - Balance disorder [Unknown]
